FAERS Safety Report 5754088-6 (Version None)
Quarter: 2008Q2

REPORT INFORMATION
  Report Type: 
  Country: None (occurrence: None)
  Receive Date: 20080530
  Receipt Date: 20080523
  Transmission Date: 20081010
  Serious: Yes (Hospitalization, Other)
  Sender: FDA-Public Use
  Company Number: PHHO2008JP03768

PATIENT
  Sex: Male
  Weight: 82 kg

DRUGS (39)
  1. RAD 666 RAD+TAB+PTR [Suspect]
     Indication: RENAL TRANSPLANT
     Dosage: UNK, UNK
     Route: 048
     Dates: start: 20080311, end: 20080311
  2. RAD 666 RAD+TAB+PTR [Suspect]
     Dosage: UNK, UNK
     Route: 048
     Dates: start: 20080312, end: 20080325
  3. RAD 666 RAD+TAB+PTR [Suspect]
     Route: 048
     Dates: start: 20080326, end: 20080326
  4. RAD 666 RAD+TAB+PTR [Suspect]
     Route: 048
     Dates: start: 20080327, end: 20080327
  5. RAD 666 RAD+TAB+PTR [Suspect]
     Route: 048
     Dates: start: 20080328, end: 20080328
  6. RAD 666 RAD+TAB+PTR [Suspect]
     Dates: start: 20080403
  7. RAD 666 RAD+TAB+PTR [Suspect]
     Route: 048
     Dates: start: 20080409
  8. RAD 666 RAD+TAB+PTR [Suspect]
     Route: 048
     Dates: start: 20080409
  9. NEORAL [Suspect]
     Indication: RENAL TRANSPLANT
     Route: 048
     Dates: start: 20080307, end: 20080310
  10. NEORAL [Suspect]
     Route: 048
     Dates: start: 20080307, end: 20080310
  11. NEORAL [Suspect]
     Route: 048
     Dates: start: 20080307, end: 20080310
  12. NEORAL [Suspect]
     Route: 048
     Dates: start: 20080312
  13. NEORAL [Suspect]
     Route: 048
     Dates: start: 20080312
  14. NEORAL [Suspect]
     Dosage: UNK, UNK
     Route: 048
     Dates: start: 20080312
  15. NEORAL [Suspect]
     Route: 048
     Dates: start: 20080316
  16. SPANIDIN [Suspect]
     Indication: KIDNEY TRANSPLANT REJECTION
     Route: 042
     Dates: start: 20080314, end: 20080323
  17. SPANIDIN [Suspect]
     Route: 042
     Dates: start: 20080314, end: 20080323
  18. MEDROL [Suspect]
  19. SANDIMMUNE [Concomitant]
     Indication: RENAL TRANSPLANT
     Route: 042
     Dates: start: 20080310, end: 20080310
  20. SANDIMMUNE [Concomitant]
     Route: 042
     Dates: start: 20080310, end: 20080310
  21. SANDIMMUNE [Concomitant]
     Route: 042
     Dates: start: 20080311, end: 20080311
  22. SIMULECT [Concomitant]
     Indication: RENAL TRANSPLANT
     Dosage: 20 MG, DAILY
     Route: 042
     Dates: start: 20080310, end: 20080310
  23. SIMULECT [Concomitant]
     Dosage: 20 MG, DAILY
     Route: 042
     Dates: start: 20080314, end: 20080314
  24. MILTAX [Concomitant]
  25. TAKEPRON [Concomitant]
  26. ISODINE [Concomitant]
  27. UREPEARL [Concomitant]
  28. FUNGIZONE [Concomitant]
  29. PACETCOOL [Concomitant]
  30. SODIUM CHLORIDE [Concomitant]
  31. MAALOX [Concomitant]
  32. PERSANTINE [Concomitant]
  33. HANP [Concomitant]
  34. GLUCOSE [Concomitant]
  35. ALBUMIN TANNATE [Concomitant]
  36. FLORID [Concomitant]
  37. POSTERISAN [Concomitant]
  38. LOPEMIN [Concomitant]
  39. MYSLEE [Concomitant]

REACTIONS (18)
  - BLOOD CREATININE INCREASED [None]
  - COMPLICATIONS OF TRANSPLANTED KIDNEY [None]
  - DIARRHOEA [None]
  - DYSPNOEA [None]
  - HAEMORRHOIDS [None]
  - KIDNEY TRANSPLANT REJECTION [None]
  - LUNG DISORDER [None]
  - NEPHROPATHY TOXIC [None]
  - PANCYTOPENIA [None]
  - PHARYNGOLARYNGEAL DISCOMFORT [None]
  - PLATELET COUNT DECREASED [None]
  - PROTEINURIA [None]
  - PULMONARY OEDEMA [None]
  - RENAL DISORDER [None]
  - RENAL TUBULAR NECROSIS [None]
  - THERAPEUTIC AGENT TOXICITY [None]
  - URINARY RETENTION [None]
  - URINE OUTPUT DECREASED [None]
